FAERS Safety Report 9237528 (Version 1)
Quarter: 2013Q2

REPORT INFORMATION
  Report Type: Spontaneous
  Country: US (occurrence: US)
  Receive Date: 20130417
  Receipt Date: 20130417
  Transmission Date: 20140414
  Serious: No
  Sender: FDA-Public Use
  Company Number: US-009507513-1304USA008359

PATIENT
  Age: 6 Year
  Sex: Male

DRUGS (2)
  1. CLARITIN CHEWABLE TABLETS [Suspect]
     Indication: ARTHROPOD BITE
     Dosage: 5 MG, QD
     Route: 048
     Dates: start: 20130407
  2. CLARITIN CHEWABLE TABLETS [Suspect]
     Dosage: 25 MG, ONCE
     Route: 048
     Dates: start: 20130408

REACTIONS (2)
  - Overdose [Unknown]
  - Off label use [Unknown]
